FAERS Safety Report 4300415-6 (Version None)
Quarter: 2004Q1

REPORT INFORMATION
  Report Type: 
  Country: None (occurrence: None)
  Receive Date: 20040218
  Receipt Date: 20040204
  Transmission Date: 20041129
  Serious: Yes (Hospitalization)
  Sender: FDA-Public Use
  Company Number: JP_040202614

PATIENT
  Age: 66 Year
  Sex: Male

DRUGS (3)
  1. ZYPREXA [Suspect]
     Dosage: 7.5 MG/DAY
  2. DONEPEZIL HCL [Concomitant]
  3. TRIHEXYPHENIDYL HCL [Concomitant]

REACTIONS (8)
  - CEREBRAL ATROPHY [None]
  - DEMENTIA [None]
  - DEPRESSED LEVEL OF CONSCIOUSNESS [None]
  - EXCITABILITY [None]
  - MUSCLE RIGIDITY [None]
  - PHYSICAL EXAMINATION ABNORMAL [None]
  - RESTLESSNESS [None]
  - TREMOR [None]
